FAERS Safety Report 12522993 (Version 1)
Quarter: 2016Q3

REPORT INFORMATION
  Report Type: Not Available
  Country: IE (occurrence: IE)
  Receive Date: 20160701
  Receipt Date: 20160701
  Transmission Date: 20161109
  Serious: Yes (Other)
  Sender: FDA-Public Use
  Company Number: IE-ANIPHARMA-2016-IE-000001

PATIENT
  Age: 96 Year
  Sex: Male

DRUGS (2)
  1. VANCOMYCIN HYDROCHLORIDE (NON-SPECIFIC) [Suspect]
     Active Substance: VANCOMYCIN HYDROCHLORIDE
     Dosage: UNKNOWN
     Route: 065
  2. ORAMORPH [Suspect]
     Active Substance: MORPHINE SULFATE
     Dosage: 2.5 MG
     Route: 048

REACTIONS (2)
  - Drug interaction [Unknown]
  - Anaphylactoid reaction [Unknown]
